FAERS Safety Report 16688061 (Version 2)
Quarter: 2020Q4

REPORT INFORMATION
  Report Type: Spontaneous
  Country: CH (occurrence: CH)
  Receive Date: 20190809
  Receipt Date: 20201201
  Transmission Date: 20210113
  Serious: Yes (Hospitalization, Other)
  Sender: FDA-Public Use
  Company Number: CH-JNJFOC-20190807922

PATIENT
  Age: 77 Year
  Sex: Female

DRUGS (2)
  1. RISPERDAL [Suspect]
     Active Substance: RISPERIDONE
     Dosage: ROUTE:048
     Route: 048
     Dates: start: 20190726, end: 20190816
  2. RISPERDAL [Suspect]
     Active Substance: RISPERIDONE
     Indication: PRODUCT USED FOR UNKNOWN INDICATION
     Dosage: ROUTE:048
     Route: 048
     Dates: start: 201904, end: 20190718

REACTIONS (5)
  - General physical health deterioration [Recovered/Resolved with Sequelae]
  - Cogwheel rigidity [Recovered/Resolved]
  - Sedation [Recovered/Resolved]
  - Psychomotor skills impaired [Not Recovered/Not Resolved]
  - Mutism [Recovered/Resolved]

NARRATIVE: CASE EVENT DATE: 201907
